FAERS Safety Report 10867311 (Version 3)
Quarter: 2015Q2

REPORT INFORMATION
  Report Type: Spontaneous
  Country: US (occurrence: US)
  Receive Date: 20150225
  Receipt Date: 20150512
  Transmission Date: 20150821
  Serious: Yes (Other)
  Sender: FDA-Public Use
  Company Number: US-PFIZER INC-2015070708

PATIENT
  Age: 64 Year
  Sex: Male

DRUGS (1)
  1. LIPITOR [Suspect]
     Active Substance: ATORVASTATIN CALCIUM
     Indication: BLOOD CHOLESTEROL INCREASED
     Dosage: UNK
     Dates: start: 2005, end: 20050623

REACTIONS (7)
  - Muscle atrophy [Not Recovered/Not Resolved]
  - Blood creatine phosphokinase increased [Unknown]
  - Deep vein thrombosis [Unknown]
  - Balance disorder [Not Recovered/Not Resolved]
  - Muscle disorder [Not Recovered/Not Resolved]
  - Myopathy [Not Recovered/Not Resolved]
  - Aortic embolus [Unknown]

NARRATIVE: CASE EVENT DATE: 2005
